FAERS Safety Report 8432577 (Version 3)
Quarter: 2012Q4

REPORT INFORMATION
  Report Type: Report from Study
  Country: US (occurrence: US)
  Receive Date: 20120229
  Receipt Date: 20120924
  Transmission Date: 20130627
  Serious: Yes (Hospitalization)
  Sender: FDA-Public Use
  Company Number: US-JNJFOC-20120213083

PATIENT
  Age: 47 Year
  Sex: Male
  Weight: 102.51 kg

DRUGS (19)
  1. PALIPERIDONE [Suspect]
     Indication: SCHIZOPHRENIA
     Route: 048
     Dates: start: 20111021
  2. VISTARIL [Concomitant]
     Indication: ANXIETY
     Route: 048
     Dates: start: 20110911, end: 20111011
  3. XANAX [Concomitant]
     Indication: ANXIETY
     Route: 048
     Dates: start: 20120124, end: 20120208
  4. XANAX [Concomitant]
     Indication: ANXIETY
     Route: 048
     Dates: start: 20111207
  5. XANAX [Concomitant]
     Indication: ANXIETY
     Route: 048
     Dates: start: 20120120
  6. XANAX [Concomitant]
     Indication: IRRITABILITY
     Route: 048
     Dates: start: 20111207
  7. XANAX [Concomitant]
     Indication: IRRITABILITY
     Route: 048
     Dates: start: 20120120
  8. XANAX [Concomitant]
     Indication: IRRITABILITY
     Route: 048
     Dates: start: 20120124, end: 20120208
  9. COGENTIN [Concomitant]
     Indication: EXTRAPYRAMIDAL DISORDER
     Route: 048
     Dates: start: 20111123, end: 20120123
  10. COGENTIN [Concomitant]
     Indication: EXTRAPYRAMIDAL DISORDER
     Route: 048
     Dates: start: 20111118, end: 20111122
  11. COGENTIN [Concomitant]
     Indication: EXTRAPYRAMIDAL DISORDER
     Route: 048
     Dates: start: 20120124, end: 20120213
  12. COGENTIN [Concomitant]
     Indication: DYSARTHRIA
     Route: 048
     Dates: start: 20111118, end: 20111122
  13. COGENTIN [Concomitant]
     Indication: DYSARTHRIA
     Route: 048
     Dates: start: 20111123, end: 20120123
  14. COGENTIN [Concomitant]
     Indication: DYSARTHRIA
     Route: 048
     Dates: start: 20120124, end: 20120213
  15. TEMAZEPAM [Concomitant]
     Indication: INSOMNIA
     Route: 048
     Dates: start: 20120124, end: 20120205
  16. LAMICTAL [Concomitant]
     Indication: ANXIETY
     Route: 048
     Dates: start: 20120124, end: 20120315
  17. IBUPROFEN [Concomitant]
     Indication: PAIN
     Dates: start: 2012, end: 20120313
  18. HALDOL [Concomitant]
     Indication: HALLUCINATION, AUDITORY
     Dates: start: 20120206, end: 20120213
  19. HALDOL [Concomitant]
     Indication: PSYCHOTIC DISORDER
     Dates: start: 20120206, end: 20120213

REACTIONS (1)
  - Schizophrenia, paranoid type [Recovered/Resolved]
